FAERS Safety Report 23040835 (Version 1)
Quarter: 2023Q4

REPORT INFORMATION
  Report Type: Spontaneous
  Country: US (occurrence: US)
  Receive Date: 20231006
  Receipt Date: 20231006
  Transmission Date: 20240109
  Serious: No
  Sender: FDA-Public Use
  Company Number: US-JUBILANT CADISTA PHARMACEUTICALS INC.-2023JUB00185

PATIENT
  Sex: Female
  Weight: 54.422 kg

DRUGS (10)
  1. PREDNISONE [Suspect]
     Active Substance: PREDNISONE
     Indication: Urticaria
     Dosage: UNK
     Route: 048
     Dates: start: 20210824, end: 2021
  2. PREDNISONE [Suspect]
     Active Substance: PREDNISONE
     Dosage: 40 MG, EVERY DAY FOR 7 DAYS
     Route: 048
     Dates: start: 20211014, end: 20211020
  3. PREDNISONE [Suspect]
     Active Substance: PREDNISONE
     Dosage: 20 MG, EVERY DAY FOR 7 DAYS
     Route: 048
     Dates: start: 20211021, end: 20211027
  4. TRIAMCINOLONE [Concomitant]
     Active Substance: TRIAMCINOLONE
     Indication: Urticaria
     Dosage: APPLY TO AFFECTED AREA(S) 2-3X/DAY AS NEEDED
     Route: 061
     Dates: start: 20210728
  5. ATENOLOL [Concomitant]
     Active Substance: ATENOLOL
     Dosage: 25 MG, 1X/DAY
     Route: 048
  6. LEVOTHYROXINE SODIUM [Concomitant]
     Active Substance: LEVOTHYROXINE SODIUM
     Dosage: 88 ?G, 1X/DAY
     Route: 048
  7. ALLEGRA ALLERGY [Concomitant]
     Active Substance: FEXOFENADINE HYDROCHLORIDE
     Dosage: 180 MG, 1X/DAY
  8. ZYRTEC [Concomitant]
     Active Substance: CETIRIZINE HYDROCHLORIDE
     Dosage: 10 MG, 1X/DAY
  9. VITAMIN D NOS [Concomitant]
     Active Substance: VITAMIN D NOS
     Dosage: UNK
     Route: 048
  10. MULTIVITAMIN AND OMEGA 3 VITAMINS [Concomitant]
     Dosage: 2 GUMMY CHEWS

REACTIONS (3)
  - Pyrexia [Unknown]
  - Drug hypersensitivity [Unknown]
  - Off label use [Unknown]

NARRATIVE: CASE EVENT DATE: 20210101
